FAERS Safety Report 23904203 (Version 3)
Quarter: 2024Q2

REPORT INFORMATION
  Report Type: Spontaneous
  Country: US (occurrence: US)
  Receive Date: 20240527
  Receipt Date: 20240626
  Transmission Date: 20240716
  Serious: No
  Sender: FDA-Public Use
  Company Number: US-PFIZER INC-202400173627

PATIENT
  Age: 12 Year
  Sex: Male
  Weight: 33.29 kg

DRUGS (1)
  1. GENOTROPIN [Suspect]
     Active Substance: SOMATROPIN
     Indication: Hypopituitarism
     Dosage: 1.0MG DAILY

REACTIONS (3)
  - Device information output issue [Unknown]
  - Device malfunction [Unknown]
  - Illness [Unknown]

NARRATIVE: CASE EVENT DATE: 20240515
